FAERS Safety Report 10946796 (Version 1)
Quarter: 2015Q1

REPORT INFORMATION
  Report Type: Spontaneous
  Country: US (occurrence: None)
  Receive Date: 20150212
  Receipt Date: 20150212
  Transmission Date: 20150721
  Serious: No
  Sender: FDA-Public Use
  Company Number: TPA2011A00860

PATIENT
  Age: 79 Year
  Sex: Male
  Weight: 81.65 kg

DRUGS (3)
  1. ULORIC [Suspect]
     Active Substance: FEBUXOSTAT
     Indication: GOUT
     Dosage: 1 IN 1 D
     Route: 048
     Dates: start: 20110225, end: 20110228
  2. ATENOLOL. [Concomitant]
     Active Substance: ATENOLOL
  3. HYDROCHLOROTHIAZIDE. [Concomitant]
     Active Substance: HYDROCHLOROTHIAZIDE

REACTIONS (6)
  - Dizziness [None]
  - Asthenia [None]
  - Malaise [None]
  - Abdominal pain upper [None]
  - Flatulence [None]
  - Headache [None]

NARRATIVE: CASE EVENT DATE: 20110226
